FAERS Safety Report 9300849 (Version 1)
Quarter: 2013Q2

REPORT INFORMATION
  Report Type: Spontaneous
  Country: IT (occurrence: IT)
  Receive Date: 20130521
  Receipt Date: 20130521
  Transmission Date: 20140414
  Serious: Yes (Other)
  Sender: FDA-Public Use
  Company Number: PHHY2013IT049067

PATIENT
  Age: 53 Year
  Sex: Male

DRUGS (4)
  1. QUETIAPINE [Suspect]
     Indication: BIPOLAR II DISORDER
     Dosage: 300 MG, AT BED TIME
  2. QUETIAPINE [Suspect]
     Indication: AGITATED DEPRESSION
  3. VALPROATE [Concomitant]
     Indication: BIPOLAR II DISORDER
     Dosage: 750 MG, AT BED TIME
  4. VALPROATE [Concomitant]
     Indication: AGITATED DEPRESSION

REACTIONS (2)
  - Somnambulism [Unknown]
  - Abnormal dreams [Unknown]
